FAERS Safety Report 10220995 (Version 1)
Quarter: 2014Q2

REPORT INFORMATION
  Report Type: Spontaneous
  Country: US (occurrence: None)
  Receive Date: 20140605
  Receipt Date: 20140605
  Transmission Date: 20141212
  Serious: Yes (Other)
  Sender: FDA-Public Use
  Company Number: None

PATIENT
  Age: 48 Year
  Sex: Male

DRUGS (6)
  1. REBIF [Suspect]
     Indication: MULTIPLE SCLEROSIS
     Dosage: 44MCG TIW SUBQ
     Route: 058
     Dates: start: 20140211
  2. AMPYRA [Concomitant]
  3. B COMPLEX [Concomitant]
  4. FISH OIL [Concomitant]
  5. VIT D [Concomitant]
  6. COQ10 [Concomitant]

REACTIONS (1)
  - Feeling abnormal [None]
